FAERS Safety Report 8241297-X (Version None)
Quarter: 2012Q1

REPORT INFORMATION
  Report Type: 
  Country: None (occurrence: None)
  Receive Date: 20120328
  Receipt Date: 20120315
  Transmission Date: 20120608
  Serious: Yes (Other)
  Sender: FDA-Public Use
  Company Number: BR-ELI_LILLY_AND_COMPANY-BR201203004622

PATIENT
  Sex: Female
  Weight: 52.5 kg

DRUGS (3)
  1. INSULIN NPH                        /01223208/ [Concomitant]
     Dosage: 5 IU, EACH EVENING
     Route: 065
  2. INSULIN NPH                        /01223208/ [Concomitant]
     Indication: TYPE 1 DIABETES MELLITUS
     Dosage: UNK, UNKNOWN
     Route: 065
  3. HUMALOG [Suspect]
     Indication: TYPE 1 DIABETES MELLITUS
     Dosage: 1 IU, OTHER
     Route: 058
     Dates: start: 20120312

REACTIONS (4)
  - LIPODYSTROPHY ACQUIRED [None]
  - BLOOD GLUCOSE INCREASED [None]
  - DRUG DOSE OMISSION [None]
  - INJECTION SITE HAEMORRHAGE [None]
